FAERS Safety Report 7802268-8 (Version None)
Quarter: 2011Q4

REPORT INFORMATION
  Report Type: 
  Country: None (occurrence: None)
  Receive Date: 20111007
  Receipt Date: 20110928
  Transmission Date: 20120403
  Serious: Yes (Hospitalization)
  Sender: FDA-Public Use
  Company Number: JP-JNJFOC-20110704639

PATIENT
  Sex: Male

DRUGS (26)
  1. METHOTREXATE [Suspect]
     Indication: ACUTE LYMPHOCYTIC LEUKAEMIA
     Route: 065
     Dates: start: 20110614, end: 20110614
  2. LEUKERIN [Concomitant]
     Indication: ACUTE LYMPHOCYTIC LEUKAEMIA
     Route: 048
     Dates: start: 20110614, end: 20110620
  3. OLOPATADINE HCL [Concomitant]
     Indication: ACUTE LYMPHOCYTIC LEUKAEMIA
     Route: 048
     Dates: start: 20110616, end: 20110620
  4. CYTARABINE [Concomitant]
     Route: 041
     Dates: start: 20110614, end: 20110619
  5. PINORUBIN [Concomitant]
     Indication: ACUTE LYMPHOCYTIC LEUKAEMIA
     Route: 041
     Dates: start: 20110607, end: 20110608
  6. DORIPENEM MONOHYDRATE [Suspect]
     Indication: FEBRILE NEUTROPENIA
     Route: 041
     Dates: start: 20110616, end: 20110623
  7. PREDNISOLONE [Concomitant]
     Indication: ACUTE LYMPHOCYTIC LEUKAEMIA
     Route: 048
     Dates: start: 20110604, end: 20110606
  8. CYTARABINE [Concomitant]
     Route: 041
  9. ALKERAN [Concomitant]
     Indication: ACUTE LYMPHOCYTIC LEUKAEMIA
     Route: 048
     Dates: start: 20110607, end: 20110620
  10. CYCLOPHOSPHAMIDE [Concomitant]
     Indication: ACUTE LYMPHOCYTIC LEUKAEMIA
     Route: 041
     Dates: start: 20110614, end: 20110614
  11. IMMUNE GLOBULIN (HUMAN) [Suspect]
     Indication: FEBRILE NEUTROPENIA
     Route: 042
  12. CYTARABINE [Suspect]
     Route: 065
     Dates: start: 20110607, end: 20110607
  13. CYCLOPHOSPHAMIDE [Concomitant]
     Route: 041
  14. NEUTROGIN [Concomitant]
     Indication: ACUTE LYMPHOCYTIC LEUKAEMIA
     Route: 042
  15. VFEND [Concomitant]
     Indication: FEBRILE NEUTROPENIA
     Route: 048
     Dates: start: 20110608
  16. VANCOMYCIN [Concomitant]
     Indication: FEBRILE NEUTROPENIA
     Route: 048
     Dates: start: 20110621, end: 20110714
  17. VFEND [Concomitant]
     Indication: ACUTE LYMPHOCYTIC LEUKAEMIA
     Route: 048
     Dates: start: 20110608
  18. MAXIPIME [Concomitant]
     Indication: FEBRILE NEUTROPENIA
     Route: 041
     Dates: start: 20110608, end: 20110616
  19. HYDROCORTISONE SODIUM PHOSPHATE [Concomitant]
     Route: 065
     Dates: start: 20110607, end: 20110607
  20. URSO 250 [Concomitant]
     Indication: LIVER DISORDER
     Route: 048
     Dates: start: 20110322
  21. OLOPATADINE HCL [Concomitant]
     Indication: DRUG ERUPTION
     Route: 048
     Dates: start: 20110616, end: 20110620
  22. CYTARABINE [Suspect]
     Indication: ACUTE LYMPHOCYTIC LEUKAEMIA
     Route: 065
     Dates: start: 20110614, end: 20110614
  23. METHOTREXATE [Suspect]
     Route: 065
     Dates: start: 20110607, end: 20110607
  24. HYDROCORTISONE SODIUM PHOSPHATE [Concomitant]
     Indication: ACUTE LYMPHOCYTIC LEUKAEMIA
     Route: 065
     Dates: start: 20110614, end: 20110614
  25. CYTARABINE [Concomitant]
     Route: 041
     Dates: start: 20110607, end: 20110612
  26. CYCLOPHOSPHAMIDE [Concomitant]
     Route: 041
     Dates: start: 20110607, end: 20110607

REACTIONS (7)
  - DYSLALIA [None]
  - DYSARTHRIA [None]
  - DYSKINESIA [None]
  - AKATHISIA [None]
  - MUSCULOSKELETAL STIFFNESS [None]
  - HEMIPLEGIA [None]
  - ECCENTRIC FIXATION [None]
